FAERS Safety Report 7440978-5 (Version None)
Quarter: 2011Q2

REPORT INFORMATION
  Report Type: 
  Country: None (occurrence: None)
  Receive Date: 20110427
  Receipt Date: 20110426
  Transmission Date: 20111010
  Serious: Yes (Hospitalization)
  Sender: FDA-Public Use
  Company Number: JP-ABBOTT-11P-087-0721519-00

PATIENT
  Sex: Female
  Weight: 30 kg

DRUGS (12)
  1. DICLOFENAC SODIUM [Concomitant]
     Indication: RHEUMATOID ARTHRITIS
     Route: 054
     Dates: end: 20101007
  2. RALOXIFENE HYDROCHLORIDE [Concomitant]
     Indication: PRODUCT USED FOR UNKNOWN INDICATION
  3. BIFIDOBACTERIUM [Concomitant]
     Indication: PRODUCT USED FOR UNKNOWN INDICATION
  4. MELOXICAM [Concomitant]
     Indication: PRODUCT USED FOR UNKNOWN INDICATION
  5. HUMIRA [Suspect]
     Indication: RHEUMATOID ARTHRITIS
     Route: 058
     Dates: start: 20100304, end: 20100621
  6. TACROLIMUS HYDRATE [Concomitant]
     Indication: RHEUMATOID ARTHRITIS
  7. FAMOTIDINE [Concomitant]
     Indication: PRODUCT USED FOR UNKNOWN INDICATION
  8. PREDNISOLONE [Concomitant]
     Indication: RHEUMATOID ARTHRITIS
     Route: 048
  9. ISONIAZID [Concomitant]
     Indication: ANTIBIOTIC PROPHYLAXIS
  10. MAGNESIUM OXIDE [Concomitant]
     Indication: PRODUCT USED FOR UNKNOWN INDICATION
  11. HUMIRA [Suspect]
     Dates: start: 20100909, end: 20110120
  12. HUMIRA [Suspect]
     Dates: start: 20110310

REACTIONS (2)
  - BACK PAIN [None]
  - COMPRESSION FRACTURE [None]
